FAERS Safety Report 8766822 (Version 1)
Quarter: 2012Q4

REPORT INFORMATION
  Report Type: Report from Study
  Country: BE (occurrence: BE)
  Receive Date: 20120903
  Receipt Date: 20120903
  Transmission Date: 20130627
  Serious: Yes (Hospitalization)
  Sender: FDA-Public Use
  Company Number: BE-BAYER-2012-087704

PATIENT
  Sex: Male

DRUGS (1)
  1. SORAFENIB [Suspect]
     Indication: HEPATIC NEOPLASM MALIGNANT
     Dosage: Daily dose 400 mg
     Dates: start: 20120627, end: 20120822

REACTIONS (2)
  - General physical health deterioration [None]
  - Ammonia abnormal [None]
